FAERS Safety Report 13792436 (Version 1)
Quarter: 2017Q3

REPORT INFORMATION
  Report Type: Spontaneous
  Country: CA (occurrence: CA)
  Receive Date: 20170725
  Receipt Date: 20170725
  Transmission Date: 20171127
  Serious: Yes (Other)
  Sender: FDA-Public Use
  Company Number: CA-AMGEN-CANSL2017111042

PATIENT

DRUGS (1)
  1. ENBREL [Suspect]
     Active Substance: ETANERCEPT
     Indication: EXPOSURE DURING PREGNANCY
     Dosage: 50 MG, UNK
     Route: 064
     Dates: start: 2017

REACTIONS (2)
  - Foetal exposure during pregnancy [Unknown]
  - Foetal disorder [Unknown]

NARRATIVE: CASE EVENT DATE: 2017
